FAERS Safety Report 7509631-3 (Version None)
Quarter: 2011Q2

REPORT INFORMATION
  Report Type: 
  Country: None (occurrence: None)
  Receive Date: 20110527
  Receipt Date: 20110509
  Transmission Date: 20111010
  Serious: Yes (Other)
  Sender: FDA-Public Use
  Company Number: CA-SANOFI-AVENTIS-2011SA013162

PATIENT

DRUGS (2)
  1. APIDRA SOLOSTAR [Suspect]
     Route: 058
  2. SOLOSTAR [Suspect]
     Route: 058

REACTIONS (3)
  - DEVICE BREAKAGE [None]
  - PRODUCT QUALITY ISSUE [None]
  - DEVICE MALFUNCTION [None]
